FAERS Safety Report 15656617 (Version 2)
Quarter: 2018Q4

REPORT INFORMATION
  Report Type: Report from Study
  Country: JP (occurrence: JP)
  Receive Date: 20181126
  Receipt Date: 20181228
  Transmission Date: 20190205
  Serious: Yes (Hospitalization, Other)
  Sender: FDA-Public Use
  Company Number: JP-ACTELION-A-CH2017-155447

PATIENT
  Age: 51 Year
  Sex: Female

DRUGS (9)
  1. REVATIO [Concomitant]
     Active Substance: SILDENAFIL CITRATE
  2. FLUITRAN [Concomitant]
     Active Substance: TRICHLORMETHIAZIDE
  3. OPSUMIT [Suspect]
     Active Substance: MACITENTAN
     Indication: PULMONARY ARTERIAL HYPERTENSION
     Dosage: 10 MG, QD
     Route: 048
     Dates: start: 20170303
  4. SPIRONOLACTONE. [Concomitant]
     Active Substance: SPIRONOLACTONE
  5. THYRADIN S [Concomitant]
     Active Substance: LEVOTHYROXINE SODIUM
  6. OXYGEN. [Concomitant]
     Active Substance: OXYGEN
  7. EPOPROSTENOL ACT [Suspect]
     Active Substance: EPOPROSTENOL
     Indication: PULMONARY ARTERIAL HYPERTENSION
     Dosage: 40 NG/KG, PER MIN
     Route: 042
  8. FERROMIA [Concomitant]
     Active Substance: SODIUM FERROUS CITRATE
  9. OPSUMIT [Suspect]
     Active Substance: MACITENTAN
     Dosage: 5 MG, QD
     Route: 048
     Dates: start: 20170217, end: 20170302

REACTIONS (11)
  - Spinal compression fracture [Recovered/Resolved]
  - Skin infection [Recovered/Resolved]
  - Staphylococcal infection [Recovered/Resolved]
  - Pseudomonas infection [Recovered/Resolved]
  - Erythema [Recovered/Resolved]
  - Purulent discharge [Recovered/Resolved]
  - Catheter site infection [Recovered/Resolved]
  - Catheter site swelling [Recovered/Resolved]
  - Device related infection [Recovered/Resolved]
  - Incisional drainage [Unknown]
  - Injection site pain [Recovered/Resolved]

NARRATIVE: CASE EVENT DATE: 20170303
